FAERS Safety Report 4678547-2 (Version None)
Quarter: 2005Q2

REPORT INFORMATION
  Report Type: 
  Country: None (occurrence: None)
  Receive Date: 20050601
  Receipt Date: 20050427
  Transmission Date: 20051028
  Serious: Yes (Other)
  Sender: FDA-Public Use
  Company Number: JP-MERCK-0505USA03373

PATIENT
  Age: 18 Year
  Sex: Male

DRUGS (3)
  1. PEPCID [Suspect]
     Route: 042
  2. MIDAZOLAM [Concomitant]
     Route: 030
  3. [THERAPY UNSPECIFIED] [Concomitant]
     Route: 042

REACTIONS (10)
  - ANAPHYLACTOID REACTION [None]
  - BREATH SOUNDS DECREASED [None]
  - COUGH [None]
  - DYSPNOEA [None]
  - EYELID OEDEMA [None]
  - LARYNGEAL OEDEMA [None]
  - OXYGEN SATURATION DECREASED [None]
  - RESPIRATORY DISORDER [None]
  - SNEEZING [None]
  - WHEEZING [None]
